FAERS Safety Report 17899372 (Version 3)
Quarter: 2020Q3

REPORT INFORMATION
  Report Type: Report from Study
  Country: US (occurrence: US)
  Receive Date: 20200615
  Receipt Date: 20200923
  Transmission Date: 20201103
  Serious: Yes (Other)
  Sender: FDA-Public Use
  Company Number: US-BIOGEN-2019BI00813678

PATIENT
  Age: 59 Year
  Sex: Female

DRUGS (2)
  1. GILENYA [Suspect]
     Active Substance: FINGOLIMOD HYDROCHLORIDE
     Indication: PRODUCT USED FOR UNKNOWN INDICATION
     Route: 065
  2. TYSABRI [Suspect]
     Active Substance: NATALIZUMAB
     Indication: MULTIPLE SCLEROSIS
     Dosage: INFUSED OVER 1 HOUR
     Route: 042
     Dates: start: 20190625

REACTIONS (20)
  - Labyrinthine fistula [Unknown]
  - Inflammatory marker increased [Recovered/Resolved]
  - Chronic kidney disease [Unknown]
  - Pain [Unknown]
  - Gastrointestinal polyp haemorrhage [Not Recovered/Not Resolved]
  - Sarcoidosis [Unknown]
  - Multiple sclerosis [Not Recovered/Not Resolved]
  - Lymphocyte count increased [Unknown]
  - Arthralgia [Not Recovered/Not Resolved]
  - Otosclerosis [Unknown]
  - Drug ineffective [Unknown]
  - Meniscus injury [Not Recovered/Not Resolved]
  - Vertigo [Recovered/Resolved]
  - Blood pressure abnormal [Unknown]
  - Rheumatoid arthritis [Unknown]
  - Skin reaction [Unknown]
  - Dermatitis [Unknown]
  - Spondylitis [Unknown]
  - Muscular weakness [Not Recovered/Not Resolved]
  - Arthralgia [Unknown]

NARRATIVE: CASE EVENT DATE: 2019
